FAERS Safety Report 5964695-3 (Version None)
Quarter: 2008Q4

REPORT INFORMATION
  Report Type: 
  Country: None (occurrence: None)
  Receive Date: 20081124
  Receipt Date: 20081124
  Transmission Date: 20090506
  Serious: Yes (Life-Threatening, Hospitalization)
  Sender: FDA-Public Use
  Company Number: None

PATIENT
  Age: 50 Year
  Sex: Male
  Weight: 81.6475 kg

DRUGS (1)
  1. PREDNISONE TAB [Suspect]
     Indication: ARTHRITIS
     Dates: start: 20080924, end: 20080928

REACTIONS (3)
  - FEELING ABNORMAL [None]
  - HYPERTENSION [None]
  - MALAISE [None]
